FAERS Safety Report 10944859 (Version 4)
Quarter: 2017Q2

REPORT INFORMATION
  Report Type: Spontaneous
  Country: US (occurrence: US)
  Receive Date: 20150323
  Receipt Date: 20170406
  Transmission Date: 20170829
  Serious: No
  Sender: FDA-Public Use
  Company Number: US-JNJFOC-20150304593

PATIENT
  Sex: Male
  Weight: 74.75 kg

DRUGS (23)
  1. RISPERDAL [Suspect]
     Active Substance: RISPERIDONE
     Indication: INTENTIONAL SELF-INJURY
     Route: 048
     Dates: start: 200601, end: 200602
  2. RISPERDAL [Suspect]
     Active Substance: RISPERIDONE
     Indication: ANGER
     Route: 048
     Dates: start: 200911, end: 201103
  3. INVEGA [Suspect]
     Active Substance: PALIPERIDONE
     Indication: ANGER
     Route: 048
     Dates: start: 201204, end: 201208
  4. RISPERDAL [Suspect]
     Active Substance: RISPERIDONE
     Indication: PRODUCT USED FOR UNKNOWN INDICATION
     Route: 048
  5. RISPERIDONE. [Suspect]
     Active Substance: RISPERIDONE
     Indication: PRODUCT USED FOR UNKNOWN INDICATION
     Route: 048
  6. RISPERDAL [Suspect]
     Active Substance: RISPERIDONE
     Indication: INTENTIONAL SELF-INJURY
     Route: 048
     Dates: start: 200911, end: 201103
  7. INVEGA [Suspect]
     Active Substance: PALIPERIDONE
     Indication: SCHIZOPHRENIA
     Route: 048
     Dates: start: 201204, end: 201208
  8. RISPERIDONE. [Suspect]
     Active Substance: RISPERIDONE
     Indication: PRODUCT USED FOR UNKNOWN INDICATION
     Route: 048
  9. RISPERDAL [Suspect]
     Active Substance: RISPERIDONE
     Indication: INTENTIONAL SELF-INJURY
     Route: 048
     Dates: start: 200604, end: 200605
  10. RISPERDAL [Suspect]
     Active Substance: RISPERIDONE
     Indication: ANGER
     Route: 048
     Dates: start: 200604, end: 200605
  11. RISPERDAL [Suspect]
     Active Substance: RISPERIDONE
     Indication: ANGER
     Route: 048
     Dates: end: 2013
  12. RISPERDAL [Suspect]
     Active Substance: RISPERIDONE
     Indication: INTENTIONAL SELF-INJURY
     Route: 048
     Dates: start: 200807, end: 200907
  13. RISPERDAL [Suspect]
     Active Substance: RISPERIDONE
     Indication: ANGER
     Route: 048
     Dates: start: 200601, end: 200602
  14. INVEGA [Suspect]
     Active Substance: PALIPERIDONE
     Indication: INTENTIONAL SELF-INJURY
     Route: 048
     Dates: start: 201204, end: 201208
  15. INVEGA [Suspect]
     Active Substance: PALIPERIDONE
     Indication: ANGER
     Route: 048
     Dates: start: 201104, end: 201201
  16. RISPERDAL [Suspect]
     Active Substance: RISPERIDONE
     Indication: INTENTIONAL SELF-INJURY
     Route: 048
     Dates: end: 2013
  17. RISPERDAL [Suspect]
     Active Substance: RISPERIDONE
     Indication: INTENTIONAL SELF-INJURY
     Route: 048
     Dates: start: 200504, end: 200506
  18. RISPERDAL [Suspect]
     Active Substance: RISPERIDONE
     Indication: ANGER
     Route: 048
     Dates: start: 200807, end: 200907
  19. INVEGA [Suspect]
     Active Substance: PALIPERIDONE
     Indication: SCHIZOPHRENIA
     Route: 048
     Dates: start: 201104, end: 201201
  20. RISPERDAL [Suspect]
     Active Substance: RISPERIDONE
     Indication: INTENTIONAL SELF-INJURY
     Route: 048
     Dates: start: 200704, end: 200804
  21. INVEGA [Suspect]
     Active Substance: PALIPERIDONE
     Indication: INTENTIONAL SELF-INJURY
     Route: 048
     Dates: start: 201104, end: 201201
  22. RISPERDAL [Suspect]
     Active Substance: RISPERIDONE
     Indication: ANGER
     Route: 048
     Dates: start: 200504, end: 200506
  23. RISPERDAL [Suspect]
     Active Substance: RISPERIDONE
     Indication: ANGER
     Route: 048
     Dates: start: 200704, end: 200804

REACTIONS (5)
  - Depression [Unknown]
  - Product use in unapproved indication [Unknown]
  - Obesity [Unknown]
  - Gynaecomastia [Unknown]
  - Off label use [Unknown]

NARRATIVE: CASE EVENT DATE: 2005
